FAERS Safety Report 15505354 (Version 2)
Quarter: 2018Q4

REPORT INFORMATION
  Report Type: Spontaneous
  Country: GB (occurrence: GB)
  Receive Date: 20181016
  Receipt Date: 20181022
  Transmission Date: 20190205
  Serious: Yes (Other)
  Sender: FDA-Public Use
  Company Number: GB-TEVA-2018-GB-964297

PATIENT
  Age: 41 Year
  Sex: Female
  Weight: 69 kg

DRUGS (6)
  1. CODEINE [Concomitant]
     Active Substance: CODEINE
  2. GENTAMICIN. [Concomitant]
     Active Substance: GENTAMICIN
  3. TRIMETHOPRIM. [Suspect]
     Active Substance: TRIMETHOPRIM
     Dosage: 200 MILLIGRAM DAILY;
     Route: 048
     Dates: start: 20180914, end: 20180915
  4. IBUPROFEN. [Concomitant]
     Active Substance: IBUPROFEN
  5. PARACETAMOL [Concomitant]
     Active Substance: ACETAMINOPHEN
  6. ORAMORPH [Concomitant]
     Active Substance: MORPHINE SULFATE

REACTIONS (5)
  - Urticaria [Recovered/Resolved]
  - Pruritus [Recovering/Resolving]
  - Affect lability [Recovered/Resolved]
  - Swelling face [Recovered/Resolved]
  - Tremor [Recovering/Resolving]

NARRATIVE: CASE EVENT DATE: 20180914
